FAERS Safety Report 8139110-4 (Version None)
Quarter: 2012Q1

REPORT INFORMATION
  Report Type: 
  Country: None (occurrence: None)
  Receive Date: 20120215
  Receipt Date: 20120210
  Transmission Date: 20120608
  Serious: Yes (Congenital Anomaly)
  Sender: FDA-Public Use
  Company Number: US-MERCK-1201USA04052B1

PATIENT

DRUGS (1)
  1. SINGULAIR [Suspect]
     Indication: ASTHMA
     Route: 064

REACTIONS (4)
  - RECTAL ATRESIA [None]
  - FOETAL EXPOSURE DURING PREGNANCY [None]
  - OESOPHAGEAL ATRESIA [None]
  - EXOMPHALOS [None]
